FAERS Safety Report 12898851 (Version 3)
Quarter: 2016Q4

REPORT INFORMATION
  Report Type: Spontaneous
  Country: JP (occurrence: JP)
  Receive Date: 20161101
  Receipt Date: 20161202
  Transmission Date: 20170207
  Serious: Yes (Death, Hospitalization)
  Sender: FDA-Public Use
  Company Number: JP-ASTRAZENECA-2016SF04198

PATIENT
  Age: 31948 Day
  Sex: Male
  Weight: 46 kg

DRUGS (5)
  1. RANMARK [Concomitant]
     Active Substance: DENOSUMAB
     Indication: METASTASES TO BONE
     Dosage: DOSE UNKNOWN
     Route: 065
     Dates: start: 20160915
  2. EDIROL [Concomitant]
     Active Substance: ELDECALCITOL
     Indication: METASTASES TO BONE
     Route: 048
     Dates: start: 20160915
  3. IRESSA [Suspect]
     Active Substance: GEFITINIB
     Indication: NON-SMALL CELL LUNG CANCER
     Route: 048
     Dates: start: 20160920, end: 20160927
  4. MAXIPIME [Concomitant]
     Active Substance: CEFEPIME HYDROCHLORIDE
     Indication: INFECTION
     Route: 041
     Dates: start: 20160915, end: 20160926
  5. ZYLORIC [Concomitant]
     Active Substance: ALLOPURINOL
     Route: 048
     Dates: end: 20160926

REACTIONS (2)
  - Interstitial lung disease [Fatal]
  - Urinary retention [Not Recovered/Not Resolved]

NARRATIVE: CASE EVENT DATE: 20160926
